FAERS Safety Report 9239225 (Version 1)
Quarter: 2013Q2

REPORT INFORMATION
  Report Type: Spontaneous
  Country: FR (occurrence: FR)
  Receive Date: 20130418
  Receipt Date: 20130418
  Transmission Date: 20140414
  Serious: Yes (Other)
  Sender: FDA-Public Use
  Company Number: FR-ASTRAZENECA-2013SE24238

PATIENT
  Age: 16654 Day
  Sex: Female
  Weight: 68 kg

DRUGS (5)
  1. MERONEM [Suspect]
     Route: 042
     Dates: start: 20130224, end: 20130227
  2. HYDROCORTISONE [Suspect]
     Route: 048
     Dates: start: 201302
  3. INEXIUM [Concomitant]
     Route: 048
  4. DAFALGAN [Concomitant]
     Route: 048
  5. LOVENOX [Concomitant]
     Route: 065

REACTIONS (2)
  - Sinus bradycardia [Recovered/Resolved]
  - Malaise [Recovered/Resolved]
